FAERS Safety Report 5311564-8 (Version None)
Quarter: 2007Q2

REPORT INFORMATION
  Report Type: 
  Country: None (occurrence: None)
  Receive Date: 20070430
  Receipt Date: 20070426
  Transmission Date: 20071010
  Serious: Yes (Other)
  Sender: FDA-Public Use
  Company Number: 2007-538

PATIENT
  Age: 38 Year
  Sex: Female

DRUGS (1)
  1. CEFUHEXAL [Suspect]
     Dosage: 500MG UNKNOWN
     Route: 048
     Dates: start: 20070220, end: 20070227

REACTIONS (2)
  - ABORTION SPONTANEOUS [None]
  - DRUG EXPOSURE DURING PREGNANCY [None]
